FAERS Safety Report 7497802-4 (Version None)
Quarter: 2011Q2

REPORT INFORMATION
  Report Type: 
  Country: None (occurrence: None)
  Receive Date: 20110524
  Receipt Date: 20081215
  Transmission Date: 20111010
  Serious: Yes (Death, Hospitalization, Other)
  Sender: FDA-Public Use
  Company Number: US-BAYER-200840438NA

PATIENT
  Age: 70 Year
  Sex: Male
  Weight: 79.365 kg

DRUGS (26)
  1. TRASYLOL [Suspect]
     Dosage: ONE MILLION KIU OVER THIRTY MINUTES. APROTININ 250,000 KIU/HOUR GIVEN THROUGHOUT CASE.
     Route: 042
     Dates: start: 20000215, end: 20000215
  2. ASPIRIN [Concomitant]
     Dosage: 325 MG, QID
     Route: 048
  3. ALTACE [Concomitant]
     Dosage: 10 MG, QID
     Route: 048
  4. LASIX [Concomitant]
     Dosage: 50 MG
     Route: 042
     Dates: start: 20000215, end: 20000215
  5. VERSED [Concomitant]
     Dosage: 5 MG
     Route: 042
     Dates: start: 20000215, end: 20000215
  6. LEVOFLOXACIN [Concomitant]
     Dosage: UNK
     Dates: start: 20000221
  7. LIPITOR [Concomitant]
     Dosage: 20 MG, QID
     Route: 048
  8. HEPARIN [Concomitant]
     Dosage: 14,000 UNITS
     Route: 042
     Dates: start: 20000215, end: 20000215
  9. ALLOPURINOL [Concomitant]
     Dosage: 100 MG, QID
     Route: 048
  10. METOPROLOL SUCCINATE [Concomitant]
     Dosage: 100 MG, QID
     Route: 048
  11. PLAVIX [Concomitant]
     Dosage: 75 MG, QID
     Route: 048
     Dates: start: 20000121
  12. TRASYLOL [Suspect]
     Indication: CORONARY ARTERY BYPASS
     Dosage: 1 ML INITIAL TEST DOSE
     Route: 042
     Dates: start: 20000215, end: 20000215
  13. ACETYLSALICYLIC ACID SRT [Concomitant]
     Dosage: DAILY
     Route: 048
  14. DIGOXIN [Concomitant]
     Dosage: 0.25 MG, QID
     Route: 048
  15. NITROGLYCERIN [Concomitant]
     Dosage: 0.4 MG AS NEEDED.
     Route: 060
  16. PLASMALYTE [GLUCOSE,POTASSIUM CHLORIDE] [Concomitant]
     Dosage: UNK
     Route: 042
     Dates: start: 20000215, end: 20000215
  17. CALCIUM CHLORIDE [Concomitant]
     Dosage: 1 GRAM
     Route: 042
     Dates: start: 20000215, end: 20000215
  18. DEMADEX [Concomitant]
     Dosage: 20 MG, QID
     Route: 048
  19. FENTANYL [Concomitant]
     Dosage: 5 MG
     Route: 042
     Dates: start: 20000215, end: 20000215
  20. PROTAMINE SULFATE [Concomitant]
     Dosage: 335 MG
     Route: 042
     Dates: start: 20000215, end: 20000215
  21. NITROGLYCERIN [Concomitant]
     Dosage: UNK
     Route: 042
     Dates: start: 20000215, end: 20000215
  22. GENTAMYCIN SULFATE [Concomitant]
     Dosage: 60 MG
     Route: 042
     Dates: start: 20000215, end: 20000215
  23. PLASMA [Concomitant]
     Dosage: 2 UNITS
     Route: 042
     Dates: start: 20000215
  24. AMLODIPINE [Concomitant]
     Dosage: 5 MG, QID
     Route: 048
  25. VANCOMYCIN [Concomitant]
     Dosage: 1 GRAM
     Route: 042
     Dates: start: 20000215, end: 20000215
  26. CLAFORAN [Concomitant]
     Dosage: UNK
     Dates: start: 20000221

REACTIONS (6)
  - UNEVALUABLE EVENT [None]
  - RENAL FAILURE ACUTE [None]
  - RENAL INJURY [None]
  - INJURY [None]
  - PAIN [None]
  - RENAL FAILURE [None]
